FAERS Safety Report 9458860 (Version 2)
Quarter: 2013Q3

REPORT INFORMATION
  Report Type: Spontaneous
  Country: US (occurrence: US)
  Receive Date: 20130814
  Receipt Date: 20130904
  Transmission Date: 20140515
  Serious: Yes (Death)
  Sender: FDA-Public Use
  Company Number: US-GLAXOSMITHKLINE-A1036604A

PATIENT
  Sex: Female

DRUGS (11)
  1. COREG CR [Suspect]
     Indication: PRODUCT USED FOR UNKNOWN INDICATION
     Dosage: 40MG UNKNOWN
     Route: 065
     Dates: start: 20110503
  2. BYSTOLIC [Concomitant]
  3. EXFORGE [Concomitant]
  4. FAMOTIDINE [Concomitant]
  5. NAPROXEN [Concomitant]
  6. ASPIRIN [Concomitant]
  7. NASAL SPRAY [Concomitant]
  8. LIPITOR [Concomitant]
  9. JANUVIA [Concomitant]
  10. NOVOLOG [Concomitant]
  11. VICTOZA [Concomitant]

REACTIONS (1)
  - Death [Fatal]
